FAERS Safety Report 5939494-9 (Version None)
Quarter: 2008Q4

REPORT INFORMATION
  Report Type: 
  Country: None (occurrence: None)
  Receive Date: 20081029
  Receipt Date: 20081014
  Transmission Date: 20090506
  Serious: Yes (Other)
  Sender: FDA-Public Use
  Company Number: 2008US002863

PATIENT
  Age: 21 Year
  Sex: Male

DRUGS (4)
  1. AMBISOME [Suspect]
     Indication: ASPERGILLOSIS
     Dosage: 3, UID/QK; 5, UID/QD
  2. AMBISOME [Suspect]
     Indication: ASPERGILLOSIS
     Dosage: 3, UID/QK; 5, UID/QD
  3. CASPOFUNGIN (CASPOFUNGIN ACETATE) [Suspect]
     Indication: ASPERGILLOSIS
     Dosage: 79, UID/QD
  4. AMPHOTERICIN B [Suspect]
     Indication: ASPERGILLOSIS
     Dosage: UID/QD, TOPICAL
     Route: 061

REACTIONS (2)
  - HYPOKALAEMIA [None]
  - PROTEINURIA [None]
